FAERS Safety Report 5802187-2 (Version None)
Quarter: 2008Q3

REPORT INFORMATION
  Report Type: 
  Country: None (occurrence: None)
  Receive Date: 20080707
  Receipt Date: 20080625
  Transmission Date: 20090109
  Serious: Yes (Hospitalization)
  Sender: FDA-Public Use
  Company Number: US-PFIZER INC-2008053063

PATIENT
  Sex: Male
  Weight: 72 kg

DRUGS (6)
  1. SUTENT [Suspect]
     Indication: PROSTATE CANCER
     Route: 048
     Dates: start: 20080513, end: 20080617
  2. HYDROCHLOROTHIAZIDE [Concomitant]
     Route: 048
  3. LIPITOR [Concomitant]
     Route: 048
  4. ACETYLSALICYLIC ACID SRT [Concomitant]
     Route: 048
  5. LUPRON [Concomitant]
     Route: 058
  6. LISINOPRIL [Concomitant]
     Route: 048

REACTIONS (3)
  - CHEST PAIN [None]
  - DYSPNOEA [None]
  - SINUS BRADYCARDIA [None]
